FAERS Safety Report 11885244 (Version 1)
Quarter: 2015Q4

REPORT INFORMATION
  Report Type: Spontaneous
  Country: US (occurrence: None)
  Receive Date: 20151231
  Receipt Date: 20151231
  Transmission Date: 20160305
  Serious: Yes (Life-Threatening, Disabling, Other)
  Sender: FDA-Public Use
  Company Number: None

PATIENT
  Age: 32 Year
  Sex: Female
  Weight: 46.72 kg

DRUGS (3)
  1. TEMAZEPAM. [Concomitant]
     Active Substance: TEMAZEPAM
  2. IBUPROFEN. [Concomitant]
     Active Substance: IBUPROFEN
  3. CLINDAMYCIN [Suspect]
     Active Substance: CLINDAMYCIN\CLINDAMYCIN PHOSPHATE
     Indication: DENTAL OPERATION
     Dosage: 1 PILL
     Route: 048
     Dates: start: 20150205, end: 20150206

REACTIONS (11)
  - Viral infection [None]
  - Chronic fatigue syndrome [None]
  - Diarrhoea [None]
  - Post-traumatic stress disorder [None]
  - Chest discomfort [None]
  - Feeding disorder [None]
  - Anxiety [None]
  - Respiratory rate increased [None]
  - Anaphylactic reaction [None]
  - Respiratory disorder [None]
  - Crying [None]

NARRATIVE: CASE EVENT DATE: 20150206
